FAERS Safety Report 6768629-3 (Version None)
Quarter: 2010Q2

REPORT INFORMATION
  Report Type: 
  Country: None (occurrence: None)
  Receive Date: 20100614
  Receipt Date: 20100603
  Transmission Date: 20101027
  Serious: Yes (Other)
  Sender: FDA-Public Use
  Company Number: PE-PFIZER INC-2010060927

PATIENT

DRUGS (1)
  1. GENOTROPIN [Suspect]
     Dosage: UNK
     Route: 058

REACTIONS (3)
  - CONVULSION [None]
  - PYREXIA [None]
  - VIRAL INFECTION [None]
